FAERS Safety Report 5599345-1 (Version None)
Quarter: 2008Q1

REPORT INFORMATION
  Report Type: 
  Country: None (occurrence: None)
  Receive Date: 20080117
  Receipt Date: 20080103
  Transmission Date: 20080703
  Serious: Yes (Other)
  Sender: FDA-Public Use
  Company Number: US021998

PATIENT
  Age: 46 Year
  Sex: Female

DRUGS (13)
  1. ACTIQ [Suspect]
     Indication: PAIN
     Dosage: 400 UG PRN SUBLINGUAL
     Route: 060
     Dates: start: 20071129, end: 20071130
  2. FENTANYL [Suspect]
     Indication: PAIN
     Dosage: 50 UG TRANSDERMAL
     Route: 062
     Dates: start: 20071129
  3. PREGABALIN [Suspect]
     Indication: PAIN
     Dosage: 225 MG QD
     Dates: start: 20071129
  4. MOVICOL /01053601/ [Concomitant]
  5. DICLOFENAC [Concomitant]
  6. PARACETAMOL [Concomitant]
  7. NIFEDIPINE [Concomitant]
  8. CITALOPRAM HYDROBROMIDE [Concomitant]
  9. SIMVASTATIN [Concomitant]
  10. LANSOPRAZOLE [Concomitant]
  11. SODIUM DOCUSATE [Concomitant]
  12. HYOSCINE HBR HYT [Concomitant]
  13. BECLOMETHASONE DIPROPIONATE [Concomitant]

REACTIONS (3)
  - APNOEA [None]
  - DRUG INTERACTION [None]
  - RESPIRATORY DEPRESSION [None]
